FAERS Safety Report 6785104-0 (Version None)
Quarter: 2010Q2

REPORT INFORMATION
  Report Type: 
  Country: None (occurrence: None)
  Receive Date: 20100618
  Receipt Date: 20100609
  Transmission Date: 20101027
  Serious: Yes (Other)
  Sender: FDA-Public Use
  Company Number: 2010US002027

PATIENT
  Age: 24 Year
  Sex: Male

DRUGS (1)
  1. AMBISOME [Suspect]
     Indication: OPPORTUNISTIC INFECTION

REACTIONS (2)
  - CHEST PAIN [None]
  - RESPIRATORY DISTRESS [None]
